FAERS Safety Report 5501719-1 (Version None)
Quarter: 2007Q4

REPORT INFORMATION
  Report Type: 
  Country: None (occurrence: None)
  Receive Date: 20071026
  Receipt Date: 20071026
  Transmission Date: 20080405
  Serious: No
  Sender: FDA-Public Use
  Company Number: None

PATIENT
  Age: 57 Year
  Sex: Female
  Weight: 73.4827 kg

DRUGS (2)
  1. VANCOMYCIN [Suspect]
     Indication: OSTEOMYELITIS
     Dosage: 1 GM EVERY 12 HOURS IV, 1250 MG EVERY 12 HOURS IV
     Route: 042
     Dates: start: 20071006, end: 20071025
  2. VANCOMYCIN [Suspect]

REACTIONS (3)
  - INFUSION RELATED REACTION [None]
  - RASH GENERALISED [None]
  - SWELLING FACE [None]
